FAERS Safety Report 26040102 (Version 2)
Quarter: 2025Q4

REPORT INFORMATION
  Report Type: Spontaneous
  Country: US (occurrence: US)
  Receive Date: 20251113
  Receipt Date: 20251113
  Transmission Date: 20260118
  Serious: No
  Sender: ABBVIE
  Company Number: US-ABBVIE-6543574

PATIENT
  Age: 76 Year
  Sex: Female

DRUGS (1)
  1. CYCLOSPORINE [Suspect]
     Active Substance: CYCLOSPORINE
     Indication: Dry eye
     Route: 047
     Dates: start: 2024

REACTIONS (6)
  - Vision blurred [Unknown]
  - Eye irritation [Unknown]
  - Foreign body sensation in eyes [Recovered/Resolved]
  - Drug ineffective [Unknown]
  - Lacrimation disorder [Unknown]
  - Eye discharge [Unknown]
